FAERS Safety Report 14738715 (Version 2)
Quarter: 2018Q3

REPORT INFORMATION
  Report Type: Spontaneous
  Country: US (occurrence: US)
  Receive Date: 20180409
  Receipt Date: 20180919
  Transmission Date: 20181010
  Serious: Yes (Hospitalization, Other)
  Sender: FDA-Public Use
  Company Number: US-BIOMARINAP-US-2018-117760

PATIENT
  Age: 56 Year
  Sex: Female

DRUGS (2)
  1. ALDURAZYME [Suspect]
     Active Substance: LARONIDASE
     Indication: MUCOPOLYSACCHARIDOSIS I
     Dosage: 34.80 UNITS, UNK
     Route: 041
     Dates: start: 20050620
  2. ALDURAZYME [Suspect]
     Active Substance: LARONIDASE
     Dosage: 60 ML, QW
     Route: 041
     Dates: start: 20150608, end: 20180324

REACTIONS (2)
  - Peritonsillar abscess [Unknown]
  - Product use issue [Unknown]
